FAERS Safety Report 10133461 (Version 3)
Quarter: 2014Q2

REPORT INFORMATION
  Report Type: Report from Study
  Country: US (occurrence: US)
  Receive Date: 20140428
  Receipt Date: 20140505
  Transmission Date: 20141212
  Serious: Yes (Hospitalization)
  Sender: FDA-Public Use
  Company Number: US-OTSUKA-US-2014-10057

PATIENT
  Age: 49 Year
  Sex: Male

DRUGS (10)
  1. BLINDED OPC-14597 [Suspect]
     Indication: BIPOLAR DISORDER
     Dosage: UNK
     Route: 048
     Dates: start: 20131217, end: 20140101
  2. BLINDED OPC-14597 [Suspect]
     Dosage: 15 MG MILLIGRAM(S), QD
     Route: 048
     Dates: start: 20140102, end: 20140104
  3. LITHIUM [Concomitant]
     Indication: BIPOLAR DISORDER
     Dosage: 600 MG MILLIGRAM(S), TID
     Route: 048
     Dates: start: 2011, end: 20131226
  4. LITHIUM [Concomitant]
     Dosage: 600 MG MILLIGRAM(S), BID
     Route: 048
     Dates: start: 20131227, end: 20140102
  5. LITHIUM [Concomitant]
     Dosage: 600 MG MILLIGRAM(S), UNK
     Route: 048
     Dates: start: 20140103
  6. NEURONTIN [Concomitant]
     Indication: BIPOLAR DISORDER
     Dosage: 400 MG MILLIGRAM(S), UNK
     Dates: start: 20140104
  7. DESYREL [Concomitant]
     Indication: PRODUCT USED FOR UNKNOWN INDICATION
     Dosage: 100 MG MILLIGRAM(S), UNK
     Route: 048
  8. DESYREL [Concomitant]
     Dosage: 200 MG MILLIGRAM(S), UNK
     Route: 048
  9. ESKALITH [Concomitant]
     Indication: PRODUCT USED FOR UNKNOWN INDICATION
     Dosage: 300 MG MILLIGRAM(S), TID
     Route: 048
  10. ESKALITH [Concomitant]
     Dosage: 600 MG MILLIGRAM(S), TID
     Route: 048

REACTIONS (1)
  - Mania [Recovered/Resolved]
